FAERS Safety Report 8795742 (Version 1)
Quarter: 2012Q4

REPORT INFORMATION
  Report Type: 
  Country: CN (occurrence: CN)
  Receive Date: 20120919
  Receipt Date: 20120919
  Transmission Date: 20130627
  Serious: Yes (Hospitalization)
  Sender: FDA-Public Use
  Company Number: CN-PERRIGO-12CN007814

PATIENT
  Age: 49 Year
  Sex: Female

DRUGS (7)
  1. LORAZEPAM [Suspect]
     Indication: PRODUCT USED FOR UNKNOWN INDICATION
     Dosage: 2 mg, qd
     Route: 048
  2. ZOLPIDEM [Concomitant]
     Indication: PRODUCT USED FOR UNKNOWN INDICATION
     Dosage: 50 mg, qd
     Route: 048
  3. ZOLPIDEM [Concomitant]
     Dosage: 300 mg, Single
     Route: 048
  4. GLICLAZIDE MR [Concomitant]
     Indication: PRODUCT USED FOR UNKNOWN INDICATION
     Dosage: Unknown, Unknown
     Route: 065
  5. METOPROLOL [Concomitant]
     Indication: PRODUCT USED FOR UNKNOWN INDICATION
     Dosage: Unknown, Unknown
     Route: 048
  6. CHLORPROMAZINE [Concomitant]
     Indication: PRODUCT USED FOR UNKNOWN INDICATION
     Dosage: Unknown, Unknown
     Route: 065
  7. FLUOXETINE [Concomitant]
     Indication: PRODUCT USED FOR UNKNOWN INDICATION
     Dosage: Unknown, Unknown
     Route: 048

REACTIONS (9)
  - Stress cardiomyopathy [Unknown]
  - Supraventricular tachycardia [Unknown]
  - Metabolic acidosis [Unknown]
  - Convulsion [Unknown]
  - Tremor [Unknown]
  - Withdrawal syndrome [Unknown]
  - Electrocardiogram ST segment elevation [Unknown]
  - Cardiac enzymes increased [Unknown]
  - Echocardiogram abnormal [Unknown]
